FAERS Safety Report 13551447 (Version 1)
Quarter: 2017Q2

REPORT INFORMATION
  Report Type: Spontaneous
  Country: FR (occurrence: FR)
  Receive Date: 20170516
  Receipt Date: 20170516
  Transmission Date: 20170830
  Serious: Yes (Hospitalization, Other)
  Sender: FDA-Public Use
  Company Number: FR-MERCK KGAA-2020831

PATIENT
  Age: 56 Year
  Sex: Female

DRUGS (3)
  1. NOVOTHYROX [Suspect]
     Active Substance: LEVOTHYROXINE SODIUM
     Route: 065
  2. NOVOTHYROX [Suspect]
     Active Substance: LEVOTHYROXINE SODIUM
  3. NOVOTHYROX [Suspect]
     Active Substance: LEVOTHYROXINE SODIUM
     Indication: THYROIDITIS
     Dates: start: 201701

REACTIONS (19)
  - Depression [Unknown]
  - Negative thoughts [Unknown]
  - Dizziness [Unknown]
  - Hypoglycaemia [Unknown]
  - Hypertension [Unknown]
  - Apathy [Unknown]
  - Blood thyroid stimulating hormone increased [Unknown]
  - Weight abnormal [Unknown]
  - Feeling of body temperature change [Unknown]
  - Tremor [Unknown]
  - Hypokinesia [Unknown]
  - Malaise [Unknown]
  - Fatigue [Unknown]
  - Eye swelling [Unknown]
  - Insomnia [Not Recovered/Not Resolved]
  - Asthenia [Unknown]
  - Apallic syndrome [Recovered/Resolved]
  - Initial insomnia [Not Recovered/Not Resolved]
  - Middle insomnia [Not Recovered/Not Resolved]

NARRATIVE: CASE EVENT DATE: 2017
